FAERS Safety Report 4618040-6 (Version None)
Quarter: 2005Q1

REPORT INFORMATION
  Report Type: 
  Country: None (occurrence: None)
  Receive Date: 20050322
  Receipt Date: 20050308
  Transmission Date: 20050727
  Serious: Yes (Hospitalization)
  Sender: FDA-Public Use
  Company Number: 2004BI001438

PATIENT
  Age: 45 Year
  Sex: Female

DRUGS (9)
  1. AVONEX [Suspect]
     Indication: MULTIPLE SCLEROSIS
     Dosage: 30 UG; QW; IM
     Route: 030
     Dates: start: 20040706
  2. ALEVE [Concomitant]
  3. CRESTOR [Concomitant]
  4. PAXIL [Concomitant]
  5. NEXIUM [Concomitant]
  6. TYLENOL [Concomitant]
  7. NEURONTIN [Concomitant]
  8. METFORMIN [Concomitant]
  9. AMANTADINE [Concomitant]

REACTIONS (1)
  - GASTROENTERITIS [None]
